FAERS Safety Report 9804658 (Version 3)
Quarter: 2014Q1

REPORT INFORMATION
  Report Type: Report from Study
  Country: CA (occurrence: CA)
  Receive Date: 20140108
  Receipt Date: 20140221
  Transmission Date: 20141002
  Serious: Yes (Hospitalization, Other)
  Sender: FDA-Public Use
  Company Number: CA-ABBVIE-13P-028-1181418-00

PATIENT
  Age: 54 Year
  Sex: Male

DRUGS (2)
  1. HUMIRA [Suspect]
     Indication: COLITIS ULCERATIVE
     Route: 058
     Dates: start: 20130710, end: 20131119
  2. PREDNISONE [Concomitant]
     Indication: COLITIS ULCERATIVE

REACTIONS (19)
  - Renal failure acute [Unknown]
  - Abdominal pain [Unknown]
  - Intestinal perforation [Unknown]
  - Small intestinal perforation [Unknown]
  - Colitis ulcerative [Unknown]
  - Large intestine perforation [Unknown]
  - Septic shock [Unknown]
  - Splenic infarction [Unknown]
  - Abdominal distension [Unknown]
  - Atelectasis [Unknown]
  - Localised intraabdominal fluid collection [Unknown]
  - Peritoneal fibrosis [Unknown]
  - Peritonitis [Unknown]
  - Ascites [Unknown]
  - Haemorrhagic ascites [Unknown]
  - Splenomegaly [Unknown]
  - Intra-abdominal haematoma [Unknown]
  - Hypovolaemia [Unknown]
  - Hypotension [Unknown]
